FAERS Safety Report 13996272 (Version 2)
Quarter: 2017Q3

REPORT INFORMATION
  Report Type: Report from Study
  Country: IT (occurrence: IT)
  Receive Date: 20170921
  Receipt Date: 20170922
  Transmission Date: 20171128
  Serious: Yes (Other)
  Sender: FDA-Public Use
  Company Number: IT-TEVA-807563ACC

PATIENT
  Age: 88 Year
  Sex: Female

DRUGS (3)
  1. METFORMIN [Concomitant]
     Active Substance: METFORMIN HYDROCHLORIDE
     Indication: PRODUCT USED FOR UNKNOWN INDICATION
     Route: 048
  2. BISOPROLOL [Suspect]
     Active Substance: BISOPROLOL
     Indication: CARDIAC DISORDER
     Dosage: 4 DOSAGE FORMS DAILY;
     Route: 048
     Dates: start: 20170101, end: 20170608
  3. COUMADIN [Concomitant]
     Active Substance: WARFARIN SODIUM
     Indication: PRODUCT USED FOR UNKNOWN INDICATION
     Route: 048

REACTIONS (3)
  - Cyanosis [Recovering/Resolving]
  - Loss of consciousness [Recovering/Resolving]
  - Presyncope [Recovering/Resolving]

NARRATIVE: CASE EVENT DATE: 20170608
